FAERS Safety Report 8389587 (Version 2)
Quarter: 2015Q1

REPORT INFORMATION
  Report Type: Report from Study
  Country: US (occurrence: US)
  Receive Date: 20120203
  Receipt Date: 20150305
  Transmission Date: 20150721
  Serious: Yes (Death)
  Sender: FDA-Public Use
  Company Number: US-ROCHE-1036261

PATIENT
  Sex: Female
  Weight: 77 kg

DRUGS (13)
  1. ZOMETA [Concomitant]
     Active Substance: ZOLEDRONIC ACID
  2. KYTRIL [Concomitant]
     Active Substance: GRANISETRON HYDROCHLORIDE
     Route: 042
  3. GEMZAR [Concomitant]
     Active Substance: GEMCITABINE HYDROCHLORIDE
     Route: 042
  4. ARANESP [Concomitant]
     Active Substance: DARBEPOETIN ALFA
  5. AVASTIN [Suspect]
     Active Substance: BEVACIZUMAB
     Indication: INVASIVE DUCTAL BREAST CARCINOMA
     Route: 042
     Dates: start: 20060608
  6. DEXAMETHASONE. [Concomitant]
     Active Substance: DEXAMETHASONE
     Route: 065
  7. MIRALAX [Concomitant]
     Active Substance: POLYETHYLENE GLYCOL 3350
  8. NEULASTA [Concomitant]
     Active Substance: PEGFILGRASTIM
     Route: 065
  9. TAXOL [Concomitant]
     Active Substance: PACLITAXEL
     Route: 042
  10. COMPAZINE [Concomitant]
     Active Substance: PROCHLORPERAZINE MALEATE
  11. CIMETIDINE [Concomitant]
     Active Substance: CIMETIDINE
     Route: 065
  12. OXYCODONE [Concomitant]
     Active Substance: OXYCODONE
  13. BENADRYL [Concomitant]
     Active Substance: DIPHENHYDRAMINE HYDROCHLORIDE
     Route: 042

REACTIONS (5)
  - Dysgeusia [Unknown]
  - Abdominal distension [Unknown]
  - Pain [Unknown]
  - Neuropathy peripheral [Unknown]
  - Death [Fatal]
